FAERS Safety Report 8467030-4 (Version None)
Quarter: 2012Q2

REPORT INFORMATION
  Report Type: 
  Country: None (occurrence: None)
  Receive Date: 20120625
  Receipt Date: 20120625
  Transmission Date: 20120825
  Serious: No
  Sender: FDA-Public Use
  Company Number: None

PATIENT
  Sex: Male
  Weight: 77.1115 kg

DRUGS (1)
  1. METRONIDAZOLE [Suspect]
     Indication: BLOOD URINE PRESENT
     Dosage: 500 MG 1 TABLET BY MOUTH 3TIMES DAILY
     Route: 048
     Dates: start: 20120610, end: 20120618

REACTIONS (3)
  - VOMITING [None]
  - DIARRHOEA [None]
  - ABDOMINAL DISCOMFORT [None]
